FAERS Safety Report 22022387 (Version 1)
Quarter: 2023Q1

REPORT INFORMATION
  Report Type: Spontaneous
  Country: CN (occurrence: CN)
  Receive Date: 20230222
  Receipt Date: 20230222
  Transmission Date: 20230418
  Serious: Yes (Life-Threatening, Other)
  Sender: FDA-Public Use
  Company Number: CN-PFIZER INC-PV202300032450

PATIENT
  Age: 33 Year
  Sex: Male
  Weight: 52 kg

DRUGS (1)
  1. CYTARABINE [Suspect]
     Active Substance: CYTARABINE
     Indication: Acute myeloid leukaemia
     Dosage: 4560 MG, 2X/DAY
     Route: 041
     Dates: start: 20230201, end: 20230203

REACTIONS (4)
  - Myelosuppression [Recovering/Resolving]
  - Hiccups [Unknown]
  - Panophthalmitis [Unknown]
  - Conjunctival hyperaemia [Unknown]

NARRATIVE: CASE EVENT DATE: 20230201
